FAERS Safety Report 9158412 (Version 3)
Quarter: 2013Q2

REPORT INFORMATION
  Report Type: Spontaneous
  Country: DE (occurrence: DE)
  Receive Date: 20130312
  Receipt Date: 20130417
  Transmission Date: 20140414
  Serious: Yes (Hospitalization)
  Sender: FDA-Public Use
  Company Number: DE-GILEAD-2013-0071214

PATIENT
  Age: 27 Year
  Sex: Male

DRUGS (6)
  1. TRUVADA [Suspect]
     Indication: HIV INFECTION
     Dosage: 1 DF, QD
     Route: 048
     Dates: start: 201301
  2. TRUVADA [Suspect]
     Indication: HEPATITIS B
  3. ISENTRESS [Suspect]
     Indication: HIV INFECTION
     Dosage: 400 MG, QD
     Route: 048
     Dates: start: 2011
  4. PREZISTA [Suspect]
     Indication: HIV INFECTION
     Dosage: 1 DF, QD
     Route: 048
     Dates: start: 2011
  5. NORVIR [Suspect]
     Indication: HIV INFECTION
     Dosage: 1 DF, QD
     Route: 048
     Dates: start: 2011
  6. DARUNAVIR [Concomitant]
     Indication: HIV INFECTION
     Dosage: UNK

REACTIONS (2)
  - Genotype drug resistance test positive [Unknown]
  - Viral mutation identified [Unknown]
